FAERS Safety Report 15224797 (Version 1)
Quarter: 2018Q3

REPORT INFORMATION
  Report Type: Spontaneous
  Country: CN (occurrence: CN)
  Receive Date: 20180731
  Receipt Date: 20180731
  Transmission Date: 20181010
  Serious: Yes (Other)
  Sender: FDA-Public Use
  Company Number: PHHY2018CN052903

PATIENT
  Age: 54 Year
  Sex: Female

DRUGS (4)
  1. PYRAZINAMIDE. [Concomitant]
     Active Substance: PYRAZINAMIDE
     Indication: MENINGITIS TUBERCULOUS
     Route: 065
  2. ISONIAZID. [Suspect]
     Active Substance: ISONIAZID
     Indication: MENINGITIS TUBERCULOUS
     Route: 065
  3. RIFAMPICIN [Concomitant]
     Active Substance: RIFAMPIN
     Indication: MENINGITIS TUBERCULOUS
     Route: 065
  4. ETHAMBUTOL [Concomitant]
     Active Substance: ETHAMBUTOL HYDROCHLORIDE
     Indication: MENINGITIS TUBERCULOUS
     Route: 065

REACTIONS (7)
  - Skin plaque [Recovered/Resolved]
  - Alopecia [Recovered/Resolved]
  - Skin lesion [Recovered/Resolved]
  - Generalised erythema [Recovered/Resolved]
  - Pruritus [Recovered/Resolved]
  - Lichenoid keratosis [Recovered/Resolved]
  - Skin exfoliation [Recovered/Resolved]
